FAERS Safety Report 15270029 (Version 2)
Quarter: 2019Q1

REPORT INFORMATION
  Report Type: Spontaneous
  Country: US (occurrence: US)
  Receive Date: 20180813
  Receipt Date: 20190306
  Transmission Date: 20190417
  Serious: No
  Sender: FDA-Public Use
  Company Number: US-PFIZER INC-2018326066

PATIENT
  Age: 66 Year
  Sex: Male

DRUGS (1)
  1. GABAPENTIN. [Suspect]
     Active Substance: GABAPENTIN
     Indication: BURNING SENSATION
     Dosage: 300 MG, 3X/DAY

REACTIONS (3)
  - Intentional overdose [Unknown]
  - Drug ineffective for unapproved indication [Unknown]
  - Treatment noncompliance [Unknown]
